FAERS Safety Report 21654978 (Version 4)
Quarter: 2023Q1

REPORT INFORMATION
  Report Type: Spontaneous
  Country: EE (occurrence: EE)
  Receive Date: 20221129
  Receipt Date: 20230126
  Transmission Date: 20230417
  Serious: Yes (Other)
  Sender: FDA-Public Use
  Company Number: EE-JNJFOC-20221113580

PATIENT
  Age: 48 Year
  Sex: Male
  Weight: 87 kg

DRUGS (7)
  1. ROSUVASTATIN CALCIUM [Suspect]
     Active Substance: ROSUVASTATIN CALCIUM
     Indication: Blood cholesterol abnormal
     Dosage: 20 MG, QD
     Route: 065
  2. PALIPERIDONE PALMITATE [Suspect]
     Active Substance: PALIPERIDONE PALMITATE
     Indication: Schizophrenia
     Dosage: 75 MG, QMO
     Route: 030
     Dates: start: 2022
  3. PALIPERIDONE PALMITATE [Suspect]
     Active Substance: PALIPERIDONE PALMITATE
     Dosage: 50 MG, QMO
     Route: 030
     Dates: start: 2022
  4. PALIPERIDONE PALMITATE [Suspect]
     Active Substance: PALIPERIDONE PALMITATE
     Dosage: UNK, Q4W (150MG,100MG, 75MG, 50MG FROM 28 JUL 2022, 28 NOV 2022, 04 JAN 2023)
     Route: 030
     Dates: start: 20220728
  5. DALNESSA [Concomitant]
     Indication: Product used for unknown indication
     Dosage: UNK, QD (4 MG/ 5 MG)
     Route: 065
  6. TOUJEO [Concomitant]
     Active Substance: INSULIN GLARGINE
     Indication: Diabetes mellitus
     Dosage: FROM THE AGE OF 16, 28 UNITS S/C
     Route: 065
  7. NOVORAPID [Concomitant]
     Active Substance: INSULIN ASPART
     Indication: Diabetes mellitus
     Dosage: FROM THE AGE OF 16 (8-16 UNITS X 3S/C)
     Route: 065
     Dates: start: 20220826

REACTIONS (4)
  - Erectile dysfunction [Not Recovered/Not Resolved]
  - Hypoglycaemia [Not Recovered/Not Resolved]
  - Feeling abnormal [Recovering/Resolving]
  - Migraine [Recovering/Resolving]

NARRATIVE: CASE EVENT DATE: 20220101
